FAERS Safety Report 9098110 (Version 3)
Quarter: 2013Q2

REPORT INFORMATION
  Report Type: Spontaneous
  Country: BR (occurrence: BR)
  Receive Date: 20130213
  Receipt Date: 20130401
  Transmission Date: 20140414
  Serious: Yes (Hospitalization, Other)
  Sender: FDA-Public Use
  Company Number: BR-PFIZER INC-2013052848

PATIENT
  Age: 67 Year
  Sex: Male

DRUGS (5)
  1. XALATAN [Suspect]
     Indication: GLAUCOMA
     Dosage: 2 DROPS, 1X/DAY
     Dates: start: 20030413, end: 201206
  2. XALATAN [Suspect]
     Indication: CATARACT
     Dosage: IN RIGHT EYE ONLY
     Dates: start: 201209
  3. XALATAN [Suspect]
     Dosage: ONE DROP EACH EYE ONCE A DAY
     Dates: start: 2003
  4. COSOPT [Concomitant]
     Indication: GLAUCOMA
     Dosage: 2 DROPS 2X/DAY
     Dates: start: 20120413
  5. LIPITOR [Concomitant]
     Indication: BLOOD CHOLESTEROL
     Dosage: STRENGTH 10 MG, HALF TABLET ONCE A DAY

REACTIONS (8)
  - Cataract [Unknown]
  - Glaucoma [Unknown]
  - Intraocular pressure increased [Unknown]
  - Eye disorder [Unknown]
  - Vein disorder [Unknown]
  - Optic nerve disorder [Unknown]
  - Ocular vascular disorder [Unknown]
  - Off label use [Unknown]
